FAERS Safety Report 8290712-4 (Version None)
Quarter: 2012Q2

REPORT INFORMATION
  Report Type: 
  Country: None (occurrence: None)
  Receive Date: 20120417
  Receipt Date: 20110627
  Transmission Date: 20120825
  Serious: No
  Sender: FDA-Public Use
  Company Number: US-ASTRAZENECA-2009SE14711

PATIENT
  Age: 18673 Day
  Sex: Female
  Weight: 89.4 kg

DRUGS (15)
  1. OXYCODONE HCL [Concomitant]
     Indication: PAIN
  2. SEROQUEL [Suspect]
     Indication: SCHIZOPHRENIA
     Route: 048
  3. SEROQUEL [Suspect]
     Route: 048
     Dates: start: 20090827
  4. SEROQUEL [Suspect]
     Route: 048
     Dates: start: 20090921
  5. MORPHINE [Concomitant]
     Indication: PAIN
  6. NEXIUM [Suspect]
     Route: 048
  7. SEROQUEL [Suspect]
     Route: 048
     Dates: start: 20090921
  8. SEROQUEL [Suspect]
  9. CLONAZEPAM [Concomitant]
  10. SEROQUEL [Suspect]
  11. SIMVASTATIN [Concomitant]
     Indication: BLOOD CHOLESTEROL ABNORMAL
  12. SEROQUEL [Suspect]
     Route: 048
     Dates: start: 20090827
  13. ASPIRIN [Concomitant]
  14. SEROQUEL [Suspect]
     Indication: BIPOLAR DISORDER
     Route: 048
  15. LEVOTHYROXINE SODIUM [Concomitant]
     Indication: THYROID DISORDER

REACTIONS (3)
  - BACK PAIN [None]
  - NASOPHARYNGITIS [None]
  - PAIN IN EXTREMITY [None]
